FAERS Safety Report 8176017-0 (Version None)
Quarter: 2012Q1

REPORT INFORMATION
  Report Type: 
  Country: None (occurrence: None)
  Receive Date: 20120228
  Receipt Date: 20120223
  Transmission Date: 20120608
  Serious: Yes (Other)
  Sender: FDA-Public Use
  Company Number: GER/UKI/12/0023137

PATIENT
  Age: 76 Year
  Sex: Male

DRUGS (11)
  1. ACETAMINOPHEN [Concomitant]
  2. SERTRALINE HYDROCHLORIDE [Suspect]
     Indication: PRODUCT USED FOR UNKNOWN INDICATION
     Dates: start: 20120126
  3. FRESUBIN (FRESUBIN) [Concomitant]
  4. FYBOGEL (PLANTAGO OVATA) [Concomitant]
  5. TAMSULOSIN HCL [Concomitant]
  6. MORPHINE [Concomitant]
  7. OMEPRAZOLE [Concomitant]
  8. ADCAL-D3 (LEKOVIT CA) [Concomitant]
  9. THIAMINE HCL [Concomitant]
  10. RAMIPRIL [Concomitant]
  11. PROSTAP(LEUPRORELIN ACETATE) [Concomitant]

REACTIONS (1)
  - HYPERKALAEMIA [None]
